FAERS Safety Report 6871144-X (Version None)
Quarter: 2010Q3

REPORT INFORMATION
  Report Type: 
  Country: None (occurrence: None)
  Receive Date: 20100723
  Receipt Date: 20100713
  Transmission Date: 20110219
  Serious: Yes (Hospitalization, Other)
  Sender: FDA-Public Use
  Company Number: US-ROCHE-682482

PATIENT
  Sex: Female
  Weight: 72.2 kg

DRUGS (9)
  1. TRASTUZUMAB [Suspect]
     Dosage: FORM REPORTED AS VIALS. ^TOTAL DOSE REPORTED AS 443 MG^. TEMPORARILY STOPPED.
     Route: 042
     Dates: start: 20090223, end: 20091012
  2. DOCETAXEL [Suspect]
     Dosage: FORM REPORTED AS VIALS. ^TOTAL DOSE REPORTED AS 134 MG^.
     Route: 042
     Dates: start: 20090223
  3. CARBOPLATIN [Suspect]
     Dosage: FORM REPORTED AS VIALS. DOSING AMOUNT REPORTED AS 6 AUC. ^TOTAL DOSE REPORTED AS 815 MG^.
     Route: 042
     Dates: start: 20090223
  4. CEFAZOLIN [Concomitant]
     Dates: start: 20091012, end: 20091014
  5. LOVENOX [Concomitant]
     Dates: start: 20091012, end: 20091019
  6. TORADOL [Concomitant]
     Route: 042
     Dates: start: 20091012, end: 20091017
  7. ATIVAN [Concomitant]
     Dates: start: 20091012, end: 20091111
  8. TYLENOL [Concomitant]
     Dates: start: 20091012, end: 20091019
  9. DILANDIOL [Concomitant]
     Dosage: TDD: 1-2 MG.
     Dates: start: 20091012, end: 20091017

REACTIONS (3)
  - ABSCESS [None]
  - INFECTION [None]
  - WOUND COMPLICATION [None]
